FAERS Safety Report 6949923-X (Version None)
Quarter: 2010Q3

REPORT INFORMATION
  Report Type: 
  Country: None (occurrence: None)
  Receive Date: 20100828
  Receipt Date: 20100120
  Transmission Date: 20110219
  Serious: No
  Sender: FDA-Public Use
  Company Number: US-ABBOTT-10P-163-0620557-00

PATIENT
  Sex: Male
  Weight: 83.082 kg

DRUGS (2)
  1. NIASPAN [Suspect]
     Indication: BLOOD CHOLESTEROL INCREASED
     Dosage: AT NIGHT
     Dates: start: 20090601
  2. ASPIRIN [Concomitant]
     Indication: PRODUCT USED FOR UNKNOWN INDICATION
     Dosage: 30 MINUTES BEFORE TAKING NIASPAN

REACTIONS (4)
  - FLUSHING [None]
  - LYMPHADENOPATHY [None]
  - NIGHT SWEATS [None]
  - RASH PRURITIC [None]
